FAERS Safety Report 6447352-9 (Version None)
Quarter: 2009Q4

REPORT INFORMATION
  Report Type: 
  Country: None (occurrence: None)
  Receive Date: 20091119
  Receipt Date: 20091106
  Transmission Date: 20100525
  Serious: Yes (Hospitalization)
  Sender: FDA-Public Use
  Company Number: GB-ELI_LILLY_AND_COMPANY-GB200911001884

PATIENT
  Age: 49 Year
  Sex: Female
  Weight: 60 kg

DRUGS (3)
  1. OLANZAPINE [Suspect]
     Indication: SCHIZOPHRENIA
     Dosage: 7.5 MG, UNKNOWN
     Route: 048
     Dates: start: 20090113, end: 20091015
  2. IBUPROFEN [Concomitant]
     Indication: MYALGIA
     Dosage: 400 MG, AS NEEDED
     Route: 048
     Dates: start: 20090113
  3. PARACETAMOL [Concomitant]
     Indication: MYALGIA
     Dosage: 1 G, AS NEEDED
     Route: 048

REACTIONS (1)
  - NEUTROPENIA [None]
